FAERS Safety Report 5382872-X (Version None)
Quarter: 2007Q3

REPORT INFORMATION
  Report Type: 
  Country: None (occurrence: None)
  Receive Date: 20070703
  Receipt Date: 20070703
  Transmission Date: 20080115
  Serious: Yes (Life-Threatening)
  Sender: FDA-Public Use
  Company Number: None

PATIENT
  Sex: Male
  Weight: 83.9154 kg

DRUGS (2)
  1. FORADIL [Suspect]
     Indication: ASTHMA
     Dosage: 1 CAPSULE TWICE DAILY INHAL
     Route: 055
     Dates: start: 20061227, end: 20070628
  2. HYDROCHLOROTHIAZIDE [Suspect]
     Indication: HYPERTENSION
     Dosage: 1 TABLET DAILY PO
     Route: 048
     Dates: start: 20060407, end: 20070701

REACTIONS (2)
  - DRUG INTERACTION [None]
  - EXTRASYSTOLES [None]
